FAERS Safety Report 5312385-2 (Version None)
Quarter: 2007Q2

REPORT INFORMATION
  Report Type: 
  Country: None (occurrence: None)
  Receive Date: 20070430
  Receipt Date: 20061129
  Transmission Date: 20071010
  Serious: No
  Sender: FDA-Public Use
  Company Number: 2006UW26773

PATIENT
  Sex: Female

DRUGS (1)
  1. NEXIUM [Suspect]

REACTIONS (4)
  - AGEUSIA [None]
  - DRUG HYPERSENSITIVITY [None]
  - GLOSSODYNIA [None]
  - SWOLLEN TONGUE [None]
